FAERS Safety Report 19408932 (Version 1)
Quarter: 2021Q2

REPORT INFORMATION
  Report Type: Spontaneous
  Country: US (occurrence: US)
  Receive Date: 20210613
  Receipt Date: 20210613
  Transmission Date: 20210717
  Serious: Yes (Other)
  Sender: FDA-Public Use
  Company Number: US-GILEAD-2021-0535250

PATIENT
  Age: 77 Year
  Sex: Male
  Weight: 69.9 kg

DRUGS (1)
  1. TECARTUS [Suspect]
     Active Substance: BREXUCABTAGENE AUTOLEUCEL
     Indication: MANTLE CELL LYMPHOMA
     Dosage: SINGLE
     Route: 042
     Dates: start: 20201224, end: 20201224

REACTIONS (5)
  - Cytokine release syndrome [Unknown]
  - Immune effector cell-associated neurotoxicity syndrome [Unknown]
  - Depression [Unknown]
  - Hypoxia [Unknown]
  - Pyrexia [Unknown]

NARRATIVE: CASE EVENT DATE: 20201228
